APPROVED DRUG PRODUCT: ARIPIPRAZOLE
Active Ingredient: ARIPIPRAZOLE
Strength: 20MG
Dosage Form/Route: TABLET;ORAL
Application: A205064 | Product #005 | TE Code: AB
Applicant: HETERO LABS LTD UNIT V
Approved: Apr 28, 2015 | RLD: No | RS: No | Type: RX